FAERS Safety Report 9758555 (Version 4)
Quarter: 2014Q2

REPORT INFORMATION
  Report Type: Spontaneous
  Country: JP (occurrence: JP)
  Receive Date: 20131216
  Receipt Date: 20140430
  Transmission Date: 20141212
  Serious: Yes (Other)
  Sender: FDA-Public Use
  Company Number: JP-AMGEN-JPNSP2013087464

PATIENT
  Age: 67 Year
  Sex: Female

DRUGS (7)
  1. RANMARK [Suspect]
     Indication: METASTASES TO BONE
     Dosage: 120 MG, Q4WK
     Route: 058
     Dates: start: 20121005
  2. FASLODEX                           /01285001/ [Concomitant]
     Dosage: UNKNOWN
     Route: 065
  3. ROCALTROL [Concomitant]
     Dosage: UNKNOWN
     Route: 065
  4. TRAZENTA [Concomitant]
     Dosage: UNKNOWN
     Route: 065
  5. ZOMETA [Concomitant]
     Dosage: UNKNOWN     EVERY
     Route: 065
     Dates: start: 20050501, end: 20120803
  6. KLARICID                           /00984601/ [Concomitant]
     Dosage: 2.5 MG, UNK
     Route: 065
     Dates: start: 20131219
  7. ZITHROMAC [Concomitant]
     Dosage: 1.3 UNK, UNK
     Route: 065

REACTIONS (1)
  - Osteonecrosis of jaw [Not Recovered/Not Resolved]
